FAERS Safety Report 24755165 (Version 1)
Quarter: 2024Q4

REPORT INFORMATION
  Report Type: Spontaneous
  Country: JP (occurrence: JP)
  Receive Date: 20241219
  Receipt Date: 20241219
  Transmission Date: 20250115
  Serious: Yes (Hospitalization, Other)
  Sender: LUNDBECK
  Company Number: JP-SA-2024SA342116

PATIENT

DRUGS (14)
  1. SABRIL [Suspect]
     Active Substance: VIGABATRIN
     Indication: Infantile spasms
     Dosage: 0.35 G/DAY
     Route: 048
     Dates: start: 20211013, end: 20211014
  2. SABRIL [Suspect]
     Active Substance: VIGABATRIN
     Dosage: 0.53 G/DAY
     Route: 048
     Dates: start: 20211015, end: 20211017
  3. SABRIL [Suspect]
     Active Substance: VIGABATRIN
     Dosage: 0.7 G/DAY
     Route: 048
     Dates: start: 20211018, end: 20220718
  4. SABRIL [Suspect]
     Active Substance: VIGABATRIN
     Dosage: 0.6 G/DAY
     Route: 048
     Dates: start: 20220719, end: 20220809
  5. SABRIL [Suspect]
     Active Substance: VIGABATRIN
     Dosage: 0.5 G/DAY
     Route: 048
     Dates: start: 20220810, end: 20221027
  6. SABRIL [Suspect]
     Active Substance: VIGABATRIN
     Dosage: 0.4 G/DAY
     Route: 048
     Dates: start: 20221028, end: 20221121
  7. SABRIL [Suspect]
     Active Substance: VIGABATRIN
     Dosage: 0.3 G/DAY
     Route: 048
     Dates: start: 20221122, end: 20230116
  8. SABRIL [Suspect]
     Active Substance: VIGABATRIN
     Dosage: 0.2 G/DAY
     Route: 048
     Dates: start: 20230117, end: 20230220
  9. SABRIL [Suspect]
     Active Substance: VIGABATRIN
     Dosage: 0.1 G/DAY
     Route: 048
     Dates: start: 20230221, end: 20230321
  10. VALPROATE SODIUM [Concomitant]
     Active Substance: VALPROATE SODIUM
     Indication: Product used for unknown indication
     Dosage: 230 MG
     Dates: start: 20211012, end: 20220314
  11. VALPROATE SODIUM [Concomitant]
     Active Substance: VALPROATE SODIUM
     Dosage: 200 MG
     Dates: start: 20220315
  12. LEVOCARNITINE [Concomitant]
     Active Substance: LEVOCARNITINE
     Indication: Product used for unknown indication
     Dosage: 210 MG
     Route: 048
     Dates: start: 20211012
  13. PULMICORT TURBUHALER [Concomitant]
     Active Substance: BUDESONIDE
     Indication: Product used for unknown indication
     Dosage: UNK UNK, BID
     Dates: start: 20211012, end: 20220723
  14. MAGNESIUM OXIDE [Concomitant]
     Active Substance: MAGNESIUM OXIDE
     Indication: Product used for unknown indication
     Dosage: 1.2 G
     Dates: start: 20220415

REACTIONS (6)
  - Magnetic resonance imaging abnormal [Recovered/Resolved]
  - Encephalitis viral [Recovered/Resolved]
  - Pneumonia aspiration [Unknown]
  - Pneumonia aspiration [Recovered/Resolved]
  - Pneumonia viral [Recovered/Resolved]
  - Status epilepticus [Recovered/Resolved]

NARRATIVE: CASE EVENT DATE: 20220715
